FAERS Safety Report 5829250-4 (Version None)
Quarter: 2008Q3

REPORT INFORMATION
  Report Type: 
  Country: None (occurrence: None)
  Receive Date: 20080731
  Receipt Date: 20080724
  Transmission Date: 20090109
  Serious: Yes (Other)
  Sender: FDA-Public Use
  Company Number: US-BOEHRINGER INGELHEIM GMBH, GERMANY-2008-BP-02844BP

PATIENT
  Age: 73 Year
  Sex: Male

DRUGS (11)
  1. MOBIC [Suspect]
     Indication: OSTEOARTHRITIS
     Route: 048
     Dates: start: 20070828, end: 20080227
  2. MOBIC [Suspect]
     Dates: start: 20070821
  3. POTASSIUM CITRATE [Concomitant]
  4. CALCIUM [Concomitant]
  5. ASCORBIC ACID [Concomitant]
  6. MULTI-VITAMIN [Concomitant]
  7. PRAVASTATIN [Concomitant]
  8. OMEPRAZOLE [Concomitant]
  9. DOCUSATE SODIUM [Concomitant]
  10. SENNA [Concomitant]
  11. ASPIRIN [Concomitant]

REACTIONS (4)
  - BASAL CELL CARCINOMA [None]
  - CONSTIPATION [None]
  - FLATULENCE [None]
  - SQUAMOUS CELL CARCINOMA [None]
